FAERS Safety Report 24040344 (Version 1)
Quarter: 2024Q3

REPORT INFORMATION
  Report Type: Spontaneous
  Country: US (occurrence: None)
  Receive Date: 20240701
  Receipt Date: 20240701
  Transmission Date: 20241017
  Serious: Yes (unspecified)
  Sender: Public
  Company Number: None

PATIENT
  Age: 73 Year
  Sex: Female
  Weight: 77.4 kg

DRUGS (2)
  1. CELECOXIB [Suspect]
     Active Substance: CELECOXIB
     Indication: Arthralgia
     Dosage: 1 CAPSULE TWICE A DAY ORAL
     Route: 048
     Dates: start: 20240620, end: 20240630
  2. PRAVASTATIN [Concomitant]

REACTIONS (4)
  - Pruritus [None]
  - Erythema [None]
  - Pyrexia [None]
  - Headache [None]

NARRATIVE: CASE EVENT DATE: 20240630
